FAERS Safety Report 4505423-8 (Version None)
Quarter: 2004Q4

REPORT INFORMATION
  Report Type: 
  Country: None (occurrence: None)
  Receive Date: 20041118
  Receipt Date: 20041118
  Transmission Date: 20050328
  Serious: Yes (Other)
  Sender: FDA-Public Use
  Company Number: None

PATIENT
  Age: 40 Year
  Sex: Male
  Weight: 95.2554 kg

DRUGS (1)
  1. NAPROXEN [Suspect]
     Indication: TENDONITIS
     Dosage: 500MG  ONE BID ORAL
     Route: 048
     Dates: start: 20031123, end: 20031130

REACTIONS (3)
  - ALOPECIA AREATA [None]
  - SOMNOLENCE [None]
  - TENDONITIS [None]
